FAERS Safety Report 9787343 (Version 4)
Quarter: 2015Q4

REPORT INFORMATION
  Report Type: Spontaneous
  Country: US (occurrence: US)
  Receive Date: 20131230
  Receipt Date: 20151102
  Transmission Date: 20160305
  Serious: No
  Sender: FDA-Public Use
  Company Number: US-BIOGENIDEC-2013BI123441

PATIENT
  Age: 39 Year
  Sex: Female

DRUGS (2)
  1. TYSABRI [Suspect]
     Active Substance: NATALIZUMAB
     Indication: MULTIPLE SCLEROSIS
     Route: 042
  2. TYSABRI [Suspect]
     Active Substance: NATALIZUMAB
     Indication: MULTIPLE SCLEROSIS
     Route: 042
     Dates: start: 20090914, end: 2012

REACTIONS (4)
  - Hypoaesthesia [Not Recovered/Not Resolved]
  - Disease progression [Not Recovered/Not Resolved]
  - Insomnia [Not Recovered/Not Resolved]
  - General symptom [Recovered/Resolved]

NARRATIVE: CASE EVENT DATE: 201201
